FAERS Safety Report 7529726-8 (Version None)
Quarter: 2011Q2

REPORT INFORMATION
  Report Type: 
  Country: None (occurrence: None)
  Receive Date: 20110607
  Receipt Date: 20110530
  Transmission Date: 20111010
  Serious: Yes (Other)
  Sender: FDA-Public Use
  Company Number: B0723975A

PATIENT
  Sex: Male

DRUGS (1)
  1. SERETIDE (50MCG/500MCG) [Suspect]
     Indication: ASTHMA
     Route: 055

REACTIONS (2)
  - VOCAL CORD PARESIS [None]
  - ASTHMA [None]
